FAERS Safety Report 5648561-9 (Version None)
Quarter: 2008Q1

REPORT INFORMATION
  Report Type: 
  Country: None (occurrence: None)
  Receive Date: 20080304
  Receipt Date: 20080222
  Transmission Date: 20080703
  Serious: Yes (Other)
  Sender: FDA-Public Use
  Company Number: US-WYE-H02766308

PATIENT
  Sex: Male

DRUGS (1)
  1. ROBITUSSIN SUGAR FREE COUGH [Suspect]
     Dosage: UNKNOWN
     Route: 065

REACTIONS (1)
  - DRUG ABUSE [None]
